FAERS Safety Report 21616876 (Version 3)
Quarter: 2022Q4

REPORT INFORMATION
  Report Type: Report from Study
  Country: KR (occurrence: KR)
  Receive Date: 20221118
  Receipt Date: 20221230
  Transmission Date: 20230113
  Serious: Yes (Hospitalization)
  Sender: FDA-Public Use
  Company Number: KR-SEATTLE GENETICS-2022SGN10887

PATIENT
  Age: 77 Year
  Sex: Female
  Weight: 58 kg

DRUGS (18)
  1. TISOTUMAB VEDOTIN [Suspect]
     Active Substance: TISOTUMAB VEDOTIN
     Indication: Cervix cancer metastatic
     Dosage: 2.0 MG/KG, Q21 DAYS
     Route: 042
     Dates: start: 20221103
  2. OLOMAX [Concomitant]
     Indication: Hypertension
     Dosage: UNK
     Route: 048
     Dates: start: 1992
  3. SUGAMET [METFORMIN HYDROCHLORIDE] [Concomitant]
     Indication: Diabetes mellitus
     Dosage: UNK
     Route: 048
     Dates: start: 2018
  4. MAGMIL S [Concomitant]
     Indication: Constipation
     Dosage: UNK
     Route: 048
     Dates: start: 20220920
  5. NALOXONE HYDROCHLORIDE\OXYCODONE HYDROCHLORIDE [Concomitant]
     Active Substance: NALOXONE HYDROCHLORIDE\OXYCODONE HYDROCHLORIDE
     Indication: Tumour pain
     Dosage: UNK
     Route: 048
     Dates: start: 20210922, end: 20221110
  6. TANTUM [BENZYDAMINE HYDROCHLORIDE] [Concomitant]
     Indication: Prophylaxis
     Dosage: UNK
     Route: 050
     Dates: start: 20221018
  7. LACTICARE HC [HYDROCORTISONE] [Concomitant]
     Indication: Pruritus
     Dosage: UNK
     Route: 061
     Dates: start: 20221108
  8. ALLEGRA [Concomitant]
     Active Substance: FEXOFENADINE HYDROCHLORIDE
     Indication: Pruritus
     Dosage: UNK
     Route: 048
     Dates: start: 20221108, end: 20221108
  9. XYZAL [Concomitant]
     Active Substance: LEVOCETIRIZINE DIHYDROCHLORIDE
     Indication: Pruritus
     Dosage: UNK
     Route: 048
     Dates: start: 20221109, end: 20221109
  10. PENIRAMIN [Concomitant]
     Indication: Pruritus
     Dosage: UNK
     Route: 042
     Dates: start: 20221110, end: 20221110
  11. TRIDOL RETARD [Concomitant]
     Indication: Tumour pain
     Dosage: UNK
     Route: 042
     Dates: start: 20221110, end: 20221110
  12. PRIATIL [Concomitant]
     Indication: Cough
     Dosage: UNK
     Route: 048
     Dates: start: 20221110, end: 20221112
  13. COUGH SYRUP [AMMONIUM CHLORIDE;CHLORPHENAMINE MALEATE;DIHYDROCODEINE B [Concomitant]
     Indication: Cough
     Dosage: UNK
     Route: 048
     Dates: start: 20221110, end: 20221112
  14. MORPHINE SULFATE [Concomitant]
     Active Substance: MORPHINE SULFATE
     Indication: Enteritis
     Dosage: UNK
     Route: 042
     Dates: start: 20221110, end: 20221110
  15. KEROMIN [Concomitant]
     Indication: Enteritis
     Dosage: UNK
     Route: 042
     Dates: start: 20221110, end: 20221110
  16. TIROPRAMIDE [Concomitant]
     Active Substance: TIROPRAMIDE
     Indication: Enteritis
     Dosage: UNK
     Route: 048
     Dates: start: 20221111, end: 20221113
  17. WITH [Concomitant]
     Indication: Prophylaxis
     Dosage: UNK
     Route: 048
     Dates: start: 20221111, end: 20221113
  18. ULTRACET [Concomitant]
     Active Substance: ACETAMINOPHEN\TRAMADOL HYDROCHLORIDE
     Indication: Enteritis
     Dosage: UNK
     Route: 048
     Dates: start: 20221111

REACTIONS (1)
  - Enteritis [Recovered/Resolved]

NARRATIVE: CASE EVENT DATE: 20221115
